FAERS Safety Report 7373604-4 (Version None)
Quarter: 2011Q1

REPORT INFORMATION
  Report Type: 
  Country: None (occurrence: None)
  Receive Date: 20110325
  Receipt Date: 20110314
  Transmission Date: 20110831
  Serious: Yes (Hospitalization, Other)
  Sender: FDA-Public Use
  Company Number: US-BAYER-200811167NA

PATIENT
  Sex: Female

DRUGS (4)
  1. LUPRON [Concomitant]
  2. BETASERON [Suspect]
     Indication: MULTIPLE SCLEROSIS
     Dosage: 8 MIU, QOD
     Route: 058
     Dates: start: 20070612, end: 20090501
  3. BETASERON [Suspect]
     Dosage: 6 MIU, QOD
     Route: 058
     Dates: start: 20110124
  4. ACETAMINOPHEN [Concomitant]

REACTIONS (18)
  - PYREXIA [None]
  - BRONCHITIS [None]
  - INJECTION SITE HAEMORRHAGE [None]
  - VESSEL PUNCTURE SITE HAEMORRHAGE [None]
  - VAGINAL HAEMORRHAGE [None]
  - CONTUSION [None]
  - MOTOR DYSFUNCTION [None]
  - PAIN [None]
  - RHINORRHOEA [None]
  - INJECTION SITE HAEMATOMA [None]
  - INSOMNIA [None]
  - INTERVERTEBRAL DISC PROTRUSION [None]
  - ENDOMETRIOSIS [None]
  - HEART RATE ABNORMAL [None]
  - INJECTION SITE ULCER [None]
  - HOT FLUSH [None]
  - ELECTROCARDIOGRAM ABNORMAL [None]
  - MIGRAINE [None]
